FAERS Safety Report 5870084-2 (Version None)
Quarter: 2008Q3

REPORT INFORMATION
  Report Type: 
  Country: None (occurrence: None)
  Receive Date: 20080904
  Receipt Date: 20080822
  Transmission Date: 20090109
  Serious: Yes (Hospitalization)
  Sender: FDA-Public Use
  Company Number: JP-PFIZER INC-2008066922

PATIENT
  Age: 15 Year
  Sex: Female

DRUGS (4)
  1. ZOLOFT [Suspect]
     Route: 048
  2. DOGMATYL [Suspect]
  3. BUFFERIN [Suspect]
  4. SEDES [Suspect]

REACTIONS (2)
  - DEPRESSED LEVEL OF CONSCIOUSNESS [None]
  - OVERDOSE [None]
